FAERS Safety Report 5193785-0 (Version None)
Quarter: 2006Q4

REPORT INFORMATION
  Report Type: 
  Country: None (occurrence: None)
  Receive Date: 20061221
  Receipt Date: 20061212
  Transmission Date: 20070319
  Serious: Yes (Death, Hospitalization)
  Sender: FDA-Public Use
  Company Number: MEDI-0005212

PATIENT
  Sex: Female

DRUGS (1)
  1. ETHYOL [Suspect]
     Dates: end: 20060101

REACTIONS (4)
  - CHILLS [None]
  - METASTASES TO LUNG [None]
  - METASTATIC CARCINOMA OF THE BLADDER [None]
  - PYREXIA [None]
